FAERS Safety Report 5314797-X (Version None)
Quarter: 2007Q2

REPORT INFORMATION
  Report Type: 
  Country: None (occurrence: None)
  Receive Date: 20070502
  Receipt Date: 20070426
  Transmission Date: 20071010
  Serious: Yes (Other)
  Sender: FDA-Public Use
  Company Number: IE-GLAXOSMITHKLINE-B0463925A

PATIENT
  Age: 61 Year
  Sex: Female

DRUGS (11)
  1. AVANDIA [Suspect]
     Dosage: 4MG PER DAY
     Route: 048
     Dates: start: 20060901, end: 20070301
  2. DIAMICRON [Concomitant]
     Indication: DRUG USE FOR UNKNOWN INDICATION
     Route: 065
     Dates: start: 20040101
  3. CARDICOR [Concomitant]
  4. NIVADIL [Concomitant]
  5. GLUCOBAY [Concomitant]
  6. NEXIUM [Concomitant]
  7. NEOCLARITYN [Concomitant]
  8. LIPITOR [Concomitant]
  9. SINGULAIR [Concomitant]
  10. INDAPAMIDE [Concomitant]
  11. UNKNOWN DRUG [Concomitant]

REACTIONS (3)
  - FIBROMYALGIA [None]
  - HYPOGLYCAEMIA [None]
  - WEIGHT INCREASED [None]
